FAERS Safety Report 21430154 (Version 1)
Quarter: 2022Q4

REPORT INFORMATION
  Report Type: Spontaneous
  Country: DK (occurrence: DK)
  Receive Date: 20221009
  Receipt Date: 20221009
  Transmission Date: 20230113
  Serious: Yes (Disabling)
  Sender: FDA-Public Use
  Company Number: None

PATIENT
  Sex: Female

DRUGS (3)
  1. PREDNISOLONE [Suspect]
     Active Substance: PREDNISOLONE
     Indication: Colitis ulcerative
     Dosage: DOSAGE: 75MG ONCE DAILY, FROM 13SEP2017 50MG ONCE DAILY, GRADUALLY REDUCED , STRENGTH: UNKNOWN , TAB
     Route: 048
     Dates: start: 20170911, end: 201712
  2. PREDNISOLONE [Suspect]
     Active Substance: PREDNISOLONE
     Indication: Colitis ulcerative
     Dosage: DOSAGE: UNKNOWN BUT HIGH ,STRENGTH: UNKNOWN ,TABLET (UNCOATED, ORAL) , DURATION : 1 DAY
     Route: 048
     Dates: start: 20170904, end: 20170904
  3. SOLU-MEDROL [Suspect]
     Active Substance: METHYLPREDNISOLONE SODIUM SUCCINATE
     Indication: Colitis ulcerative
     Dosage: STRENGTH: 40MG , UNIT DOSE : 80 MG    , FREQUENCY TIME : 1 DAY  , DURATION : 5 DAYS
     Dates: start: 20170905, end: 20170910

REACTIONS (4)
  - Joint swelling [Recovered/Resolved]
  - Arthralgia [Unknown]
  - Osteonecrosis [Recovered/Resolved]
  - Cushingoid [Unknown]

NARRATIVE: CASE EVENT DATE: 20170901
